FAERS Safety Report 7546188-5 (Version None)
Quarter: 2011Q2

REPORT INFORMATION
  Report Type: 
  Country: None (occurrence: None)
  Receive Date: 20110614
  Receipt Date: 20031111
  Transmission Date: 20111010
  Serious: Yes (Death, Life-Threatening, Hospitalization)
  Sender: FDA-Public Use
  Company Number: PHHO2003CA07043

PATIENT
  Sex: Male

DRUGS (3)
  1. CLOZAPINE [Suspect]
     Indication: SCHIZOPHRENIA
     Dosage: 200 MG, UNK
     Route: 048
     Dates: start: 19990128
  2. PAXIL [Concomitant]
     Dosage: UNKNOWN
  3. ZYPREXA [Concomitant]
     Dosage: UNKNOWN

REACTIONS (1)
  - HEPATIC NEOPLASM MALIGNANT [None]
